FAERS Safety Report 9747500 (Version 3)
Quarter: 2016Q3

REPORT INFORMATION
  Report Type: Spontaneous
  Country: CI (occurrence: CI)
  Receive Date: 20131212
  Receipt Date: 20160721
  Transmission Date: 20161109
  Serious: Yes (Other)
  Sender: FDA-Public Use
  Company Number: CI-BRISTOL-MYERS SQUIBB COMPANY-19859917

PATIENT

DRUGS (2)
  1. EFAVIRENZ [Suspect]
     Active Substance: EFAVIRENZ
     Indication: HIV INFECTION
     Dosage: 600 MG, QD
     Route: 048
  2. TRUVADA [Concomitant]
     Active Substance: EMTRICITABINE\TENOFOVIR DISOPROXIL FUMARATE
     Indication: HIV INFECTION
     Dosage: 1DF= TABLET, 250MG/300 MG
     Route: 065

REACTIONS (3)
  - Nightmare [Unknown]
  - Dizziness [Unknown]
  - Delirium [Unknown]
